FAERS Safety Report 16834819 (Version 1)
Quarter: 2019Q3

REPORT INFORMATION
  Report Type: Spontaneous
  Country: NL (occurrence: NL)
  Receive Date: 20190920
  Receipt Date: 20190920
  Transmission Date: 20191005
  Serious: Yes (Life-Threatening, Hospitalization)
  Sender: FDA-Public Use
  Company Number: NL-ASTRAZENECA-2019SF31401

PATIENT
  Age: 80 Year
  Sex: Female
  Weight: 77 kg

DRUGS (12)
  1. FORMOTEROL [Concomitant]
     Active Substance: FORMOTEROL
     Dosage: 12UG/DO AS NEEDED 3X DAILY 2 DOSES
     Route: 055
  2. PARACETAMOL [Concomitant]
     Active Substance: ACETAMINOPHEN
     Dosage: 500.0MG UNKNOWN
     Route: 048
  3. FENOTEROL/IPRATROPIUM [Concomitant]
     Dosage: 50/20UG/DO AS NEEDED 4X DAILY 1
     Route: 055
  4. LEVOTHYROXINENATRIUM [Concomitant]
     Route: 048
  5. PANTOPRAZOL [Concomitant]
     Active Substance: PANTOPRAZOLE SODIUM
     Route: 048
  6. ACLIDINIUM [Concomitant]
     Active Substance: ACLIDINIUM BROMIDE
     Route: 055
  7. SPIRONOLACTONE. [Concomitant]
     Active Substance: SPIRONOLACTONE
     Route: 048
  8. BISOPROLOL [Concomitant]
     Active Substance: BISOPROLOL
     Route: 048
  9. CALCIUMCARB/COLECALC [Concomitant]
     Route: 048
  10. FUROSEMIDE. [Concomitant]
     Active Substance: FUROSEMIDE
     Route: 048
  11. BECLOMETASON [Concomitant]
     Active Substance: BECLOMETHASONE DIPROPIONATE
     Dosage: 100UG/DO BID 4 DOSES
     Route: 055
  12. FASENRA [Suspect]
     Active Substance: BENRALIZUMAB
     Indication: ASTHMA
     Route: 058
     Dates: start: 20190711

REACTIONS (1)
  - Deep vein thrombosis [Recovering/Resolving]

NARRATIVE: CASE EVENT DATE: 20190828
